FAERS Safety Report 12933950 (Version 1)
Quarter: 2016Q4

REPORT INFORMATION
  Report Type: Spontaneous
  Country: US (occurrence: US)
  Receive Date: 20161111
  Receipt Date: 20161111
  Transmission Date: 20170207
  Serious: Yes (Hospitalization, Other)
  Sender: FDA-Public Use
  Company Number: US-ELI_LILLY_AND_COMPANY-US201607010793

PATIENT
  Age: 52 Year
  Sex: Female

DRUGS (2)
  1. CYMBALTA [Suspect]
     Active Substance: DULOXETINE HYDROCHLORIDE
     Indication: PRODUCT USED FOR UNKNOWN INDICATION
     Dosage: 30 MG, QD
     Route: 048
     Dates: start: 20100724
  2. CYMBALTA [Suspect]
     Active Substance: DULOXETINE HYDROCHLORIDE
     Dosage: 30 MG, QD
     Route: 048
     Dates: start: 20140725

REACTIONS (12)
  - Dysphoria [Unknown]
  - Drug withdrawal syndrome [Unknown]
  - Fatigue [Unknown]
  - Seizure [Recovered/Resolved]
  - Confusional state [Unknown]
  - Sensory disturbance [Unknown]
  - Tremor [Unknown]
  - Anxiety [Unknown]
  - Paraesthesia [Unknown]
  - Diarrhoea [Unknown]
  - Dizziness [Unknown]
  - Hyperhidrosis [Unknown]

NARRATIVE: CASE EVENT DATE: 20150520
